FAERS Safety Report 8849212 (Version 1)
Quarter: 2012Q4

REPORT INFORMATION
  Report Type: 
  Country: US (occurrence: US)
  Receive Date: 20121019
  Receipt Date: 20121019
  Transmission Date: 20130627
  Serious: Yes (Hospitalization)
  Sender: FDA-Public Use
  Company Number: US-ELI_LILLY_AND_COMPANY-US201210003128

PATIENT
  Sex: Male

DRUGS (2)
  1. PROZAC [Suspect]
     Indication: DEPRESSION
     Dosage: UNK
     Dates: start: 201207
  2. ZOLOFT [Concomitant]
     Indication: DEPRESSION

REACTIONS (2)
  - Feeling abnormal [Recovered/Resolved]
  - Drug ineffective [Unknown]
